FAERS Safety Report 11131107 (Version 1)
Quarter: 2015Q2

REPORT INFORMATION
  Report Type: Spontaneous
  Country: DZ (occurrence: DZ)
  Receive Date: 20150522
  Receipt Date: 20150522
  Transmission Date: 20150821
  Serious: Yes (Hospitalization)
  Sender: FDA-Public Use
  Company Number: DZ-ASTRAZENECA-2015SE45551

PATIENT
  Sex: Male

DRUGS (1)
  1. HYTACAND [Suspect]
     Active Substance: CANDESARTAN CILEXETIL\HYDROCHLOROTHIAZIDE
     Route: 048

REACTIONS (2)
  - Hepatocellular carcinoma [Unknown]
  - Hepatitis C [Unknown]
